FAERS Safety Report 8125499-9 (Version None)
Quarter: 2012Q1

REPORT INFORMATION
  Report Type: 
  Country: None (occurrence: None)
  Receive Date: 20120209
  Receipt Date: 20120201
  Transmission Date: 20120608
  Serious: Yes (Death, Other)
  Sender: FDA-Public Use
  Company Number: DE-SANOFI-AVENTIS-2012SA007677

PATIENT
  Sex: Female

DRUGS (11)
  1. CAMPATH [Suspect]
     Route: 065
  2. TRIMETHOPRIM [Concomitant]
  3. FLUDARA [Suspect]
     Route: 065
  4. CYCLOSPORINE [Concomitant]
  5. SULPHAMETHOXAZOLE [Concomitant]
  6. ANTI-THYMOCYTE GLOBULIN EQUINE NOS [Concomitant]
  7. FLUCONAZOLE [Concomitant]
  8. ACYCLOVIR [Concomitant]
  9. MYCOPHENOLATE MEFETIL [Concomitant]
  10. BUSULFAN [Concomitant]
  11. CORTICOSTEROIDS [Concomitant]

REACTIONS (3)
  - PNEUMONIA [None]
  - CYTOMEGALOVIRUS INFECTION [None]
  - DEATH [None]
